FAERS Safety Report 8537247-9 (Version None)
Quarter: 2012Q3

REPORT INFORMATION
  Report Type: 
  Country: None (occurrence: None)
  Receive Date: 20120725
  Receipt Date: 20120723
  Transmission Date: 20120928
  Serious: Yes (Other)
  Sender: FDA-Public Use
  Company Number: GB-PFIZER INC-2010054666

PATIENT
  Age: 82 Year
  Sex: Female

DRUGS (25)
  1. ACETAMINOPHEN WITH PROPOXYPHENE HCL TAB [Concomitant]
     Indication: BACK PAIN
  2. CHROMIUM PICOLINATE [Concomitant]
     Dosage: 200 UG, UNK
  3. PREMARIN [Interacting]
     Indication: HORMONE REPLACEMENT THERAPY
     Dosage: 0.625 MG, 1X/DAY, 3 WEEKS OUT OF FOUR
     Dates: start: 19850101
  4. DEPO-PROVERA [Concomitant]
     Dosage: 5 MG, 1X/DAY, 2 WEEKS OUT OF 4
  5. VITAMIN B-COMPLEX, INCL COMBINATIONS [Concomitant]
  6. COPPER [Concomitant]
     Dosage: 2 MG, UNK
  7. ARTHROTEC [Suspect]
     Indication: BACK PAIN
     Dosage: 1 DF, 1X/DAY
     Dates: start: 20100429
  8. LUTEIN [Concomitant]
     Dosage: 6 MG, UNK
  9. SELENIUM [Concomitant]
  10. PYCNOGENOL [Concomitant]
     Dosage: 60 MG, UNK
  11. COD-LIVER OIL [Concomitant]
     Dosage: 498 MG, UNK
  12. DEXTROPROPOXYPHENE HYDROCHLORIDE [Concomitant]
  13. LEVOTHYROXINE [Concomitant]
     Dosage: 150 UG, 1X/DAY
  14. BENDROFLUMETHIAZIDE [Concomitant]
     Dosage: 2.5 MG, 1X/DAY
  15. GARLIC [Concomitant]
     Dosage: 2 MG, UNK
  16. PROVERA [Concomitant]
  17. CALCIUM MAGNESIUM ZINC [Concomitant]
     Dosage: UNK
  18. VOLTAROL - SLOW RELEASE [Concomitant]
  19. FLECAINIDE [Concomitant]
     Dosage: 50 MG, 2X/DAY
  20. ACETYLSALICYLIC ACID [Concomitant]
     Dosage: 75 MG, 1X/DAY
  21. ASCORBIC ACID [Concomitant]
     Dosage: 500 MG, UNK
  22. VITAMIN D [Concomitant]
     Dosage: 10 UG, UNK
  23. VITAMIN E [Concomitant]
     Dosage: 200 IU, UNK
  24. GLUCOSAMINE SULFATE [Concomitant]
     Dosage: 500 MG, UNK
  25. GINKGO BILOBA [Concomitant]
     Dosage: 60 MG, UNK

REACTIONS (4)
  - METRORRHAGIA [None]
  - AURA [None]
  - DRUG INTERACTION [None]
  - VAGINAL HAEMORRHAGE [None]
